FAERS Safety Report 5050023-7 (Version None)
Quarter: 2006Q3

REPORT INFORMATION
  Report Type: 
  Country: None (occurrence: None)
  Receive Date: 20060713
  Receipt Date: 20060704
  Transmission Date: 20061208
  Serious: Yes (Other)
  Sender: FDA-Public Use
  Company Number: 2006UW13930

PATIENT
  Age: 56 Year
  Sex: Male
  Weight: 88.5 kg

DRUGS (6)
  1. SEROQUEL [Suspect]
     Indication: SCHIZOPHRENIA
     Route: 048
     Dates: end: 20050701
  2. ZOCOR [Concomitant]
  3. BENADRYL [Concomitant]
  4. TOPROL-XL [Concomitant]
     Route: 048
  5. ABILIFY [Concomitant]
  6. TRIFLUOPERAZINE HCL [Concomitant]

REACTIONS (6)
  - DIABETES MELLITUS [None]
  - DYSPNOEA [None]
  - FALL [None]
  - HALLUCINATION [None]
  - INSOMNIA [None]
  - PANCREATITIS [None]
